FAERS Safety Report 12302573 (Version 1)
Quarter: 2016Q2

REPORT INFORMATION
  Report Type: Spontaneous
  Country: US (occurrence: US)
  Receive Date: 20160425
  Receipt Date: 20160425
  Transmission Date: 20160815
  Serious: No
  Sender: FDA-Public Use
  Company Number: US-SA-2015SA116433

PATIENT
  Sex: Female

DRUGS (3)
  1. LOVENOX [Suspect]
     Active Substance: ENOXAPARIN SODIUM
     Indication: COAGULOPATHY
     Route: 065
     Dates: start: 20150710
  2. LOVENOX [Suspect]
     Active Substance: ENOXAPARIN SODIUM
     Indication: COAGULOPATHY
     Route: 065
     Dates: start: 20150710
  3. COUMADIN [Concomitant]
     Active Substance: WARFARIN SODIUM

REACTIONS (2)
  - Pain [Unknown]
  - Visual acuity reduced [Unknown]

NARRATIVE: CASE EVENT DATE: 20150731
